FAERS Safety Report 17208849 (Version 2)
Quarter: 2019Q4

REPORT INFORMATION
  Report Type: Spontaneous
  Country: US (occurrence: US)
  Receive Date: 20191227
  Receipt Date: 20191231
  Transmission Date: 20200122
  Serious: No
  Sender: FDA-Public Use
  Company Number: US-PFIZER INC-2019556101

PATIENT
  Age: 65 Year
  Sex: Female
  Weight: 70 kg

DRUGS (4)
  1. PREGABALIN. [Suspect]
     Active Substance: PREGABALIN
     Indication: PAIN
     Dosage: 300 MG, 1X/DAY (3 CAPSULES OF 100 MG A DAY SOMETIMES SHE WOULD TAKE ONE IN THE MORNING AND 2 AT NIG)
     Dates: start: 2019, end: 2019
  2. PREGABALIN. [Suspect]
     Active Substance: PREGABALIN
     Indication: PARAESTHESIA
  3. PREGABALIN. [Suspect]
     Active Substance: PREGABALIN
     Indication: NEUROPATHY PERIPHERAL
     Dosage: 100 MG, 3X/DAY
     Dates: start: 201909, end: 201911
  4. PREGABALIN. [Suspect]
     Active Substance: PREGABALIN
     Indication: HYPOAESTHESIA

REACTIONS (6)
  - Movement disorder [Unknown]
  - Drug ineffective [Unknown]
  - Burning sensation [Unknown]
  - Pain in extremity [Unknown]
  - Pain [Unknown]
  - Malaise [Recovered/Resolved with Sequelae]

NARRATIVE: CASE EVENT DATE: 2019
